FAERS Safety Report 9132946 (Version 1)
Quarter: 2013Q1

REPORT INFORMATION
  Report Type: Spontaneous
  Country: US (occurrence: US)
  Receive Date: 20130301
  Receipt Date: 20130301
  Transmission Date: 20140127
  Serious: No
  Sender: FDA-Public Use
  Company Number: US-009507513-1302USA010742

PATIENT
  Age: 31 Year
  Sex: 0

DRUGS (1)
  1. IMPLANON [Suspect]
     Dosage: 1 ROD, EVERY 3 YEARS
     Route: 059
     Dates: start: 20100215

REACTIONS (1)
  - Expired drug administered [Unknown]
